FAERS Safety Report 17145238 (Version 1)
Quarter: 2019Q4

REPORT INFORMATION
  Report Type: Spontaneous
  Country: US (occurrence: US)
  Receive Date: 20191211
  Receipt Date: 20191211
  Transmission Date: 20200122
  Serious: No
  Sender: FDA-Public Use
  Company Number: None

PATIENT
  Age: 57 Year
  Sex: Female
  Weight: 66.6 kg

DRUGS (5)
  1. IRON SLOW RELEASE [Concomitant]
  2. CIPROFLOXACIN. [Suspect]
     Active Substance: CIPROFLOXACIN
     Indication: DIVERTICULITIS
     Dosage: ?          QUANTITY:1 TABLET(S);?
     Route: 048
     Dates: start: 20191127, end: 20191128
  3. ESTRADIOL 1.5 MG [Concomitant]
  4. PROGESTERONE 200 MG [Concomitant]
     Active Substance: PROGESTERONE
     Dosage: NIGHTLY FOR 10 DAYS EVERY 4 MONTHS.
  5. MULTIVITAMIN [Concomitant]
     Active Substance: VITAMINS

REACTIONS (9)
  - Hyperaesthesia [None]
  - Vertigo [None]
  - Skin burning sensation [None]
  - Dizziness [None]
  - Confusional state [None]
  - Reading disorder [None]
  - Aphasia [None]
  - Pain [None]
  - Insomnia [None]

NARRATIVE: CASE EVENT DATE: 20191127
